FAERS Safety Report 8082078-X (Version None)
Quarter: 2012Q1

REPORT INFORMATION
  Report Type: 
  Country: None (occurrence: None)
  Receive Date: 20120127
  Receipt Date: 20110225
  Transmission Date: 20120608
  Serious: No
  Sender: FDA-Public Use
  Company Number: US-ABBOTT-11P-163-0708029-00

PATIENT
  Sex: Female
  Weight: 95.794 kg

DRUGS (10)
  1. TRAMADOL HCL [Concomitant]
     Indication: PAIN
  2. HUMIRA [Suspect]
     Indication: MIXED CONNECTIVE TISSUE DISEASE
  3. TORSEMIDE [Concomitant]
     Indication: FLUID RETENTION
  4. METOPROLOL TARTRATE [Concomitant]
     Indication: HEART RATE DECREASED
  5. XANAX [Concomitant]
     Indication: ANXIETY
  6. HUMIRA [Suspect]
     Indication: RHEUMATOID ARTHRITIS
     Dates: start: 20110101
  7. POTASSIUM CHLORIDE [Concomitant]
     Indication: MINERAL SUPPLEMENTATION
  8. LEVOTHYROXINE SODIUM [Concomitant]
     Indication: HYPOTHYROIDISM
  9. CLIMARA [Concomitant]
     Indication: HORMONE REPLACEMENT THERAPY
  10. RELPAK [Concomitant]
     Indication: MIGRAINE

REACTIONS (1)
  - INJECTION SITE HAEMATOMA [None]
